FAERS Safety Report 5239938-4 (Version None)
Quarter: 2007Q1

REPORT INFORMATION
  Report Type: 
  Country: None (occurrence: None)
  Receive Date: 20070216
  Receipt Date: 20070207
  Transmission Date: 20070707
  Serious: Yes (Death, Hospitalization, Other)
  Sender: FDA-Public Use
  Company Number: US-PFIZER INC-2006061835

PATIENT
  Sex: Female
  Weight: 59 kg

DRUGS (2)
  1. CELEBREX [Suspect]
     Indication: ARTHRITIS
  2. BEXTRA [Suspect]
     Indication: ARTHRITIS

REACTIONS (1)
  - CARDIAC FAILURE [None]
